FAERS Safety Report 5411811-8 (Version None)
Quarter: 2007Q3

REPORT INFORMATION
  Report Type: 
  Country: None (occurrence: None)
  Receive Date: 20070713
  Receipt Date: 20070319
  Transmission Date: 20080115
  Serious: No
  Sender: FDA-Public Use
  Company Number: 2007SP000987

PATIENT
  Age: 63 Year
  Sex: Female
  Weight: 61.2356 kg

DRUGS (3)
  1. LUNESTA [Suspect]
     Indication: INSOMNIA
     Dosage: 3 MG;HS;ORAL
     Route: 048
     Dates: start: 20070317, end: 20070317
  2. AMLODIPINE BESYLATE [Concomitant]
  3. MULTIVITAMIN [Concomitant]

REACTIONS (2)
  - DIZZINESS [None]
  - HEADACHE [None]
